FAERS Safety Report 7496006-9 (Version None)
Quarter: 2011Q2

REPORT INFORMATION
  Report Type: 
  Country: None (occurrence: None)
  Receive Date: 20110523
  Receipt Date: 20110511
  Transmission Date: 20111010
  Serious: Yes (Hospitalization, Other)
  Sender: FDA-Public Use
  Company Number: US-JNJFOC-20110506029

PATIENT
  Sex: Female
  Weight: 68.04 kg

DRUGS (6)
  1. DURAGESIC-100 [Suspect]
     Indication: BACK PAIN
     Route: 062
     Dates: start: 20100101, end: 20100101
  2. XANAX [Suspect]
     Indication: ANXIETY
     Route: 048
     Dates: start: 20100101, end: 20110101
  3. OXYCONTIN [Concomitant]
     Indication: BREAKTHROUGH PAIN
     Route: 048
  4. DURAGESIC-100 [Suspect]
     Route: 062
     Dates: start: 20110506
  5. VICODIN ES [Concomitant]
     Indication: BREAKTHROUGH PAIN
     Dosage: AS NEEDED
     Route: 048
  6. FENTANYL CITRATE [Suspect]
     Indication: BACK PAIN
     Route: 062
     Dates: start: 20100101, end: 20100506

REACTIONS (9)
  - WEIGHT INCREASED [None]
  - HYPOTENSION [None]
  - CHRONIC OBSTRUCTIVE PULMONARY DISEASE [None]
  - PRODUCT ADHESION ISSUE [None]
  - CONVULSION [None]
  - SKIN INFECTION [None]
  - VITAMIN D DEFICIENCY [None]
  - BLINDNESS [None]
  - PNEUMONIA [None]
